FAERS Safety Report 10074341 (Version 1)
Quarter: 2014Q2

REPORT INFORMATION
  Report Type: Spontaneous
  Country: US (occurrence: US)
  Receive Date: 20140412
  Receipt Date: 20140412
  Transmission Date: 20141212
  Serious: No
  Sender: FDA-Public Use
  Company Number: US-009507513-1404USA004827

PATIENT
  Age: 56 Year
  Sex: Female

DRUGS (4)
  1. PEGINTRON [Suspect]
     Indication: HEPATITIS C
     Dosage: 96 MICROGRAM, QW
     Route: 058
     Dates: start: 20140326
  2. CONCERTA [Concomitant]
  3. XANAX [Concomitant]
  4. SIMVASTATIN [Concomitant]
     Route: 048

REACTIONS (10)
  - Feeling cold [Recovered/Resolved]
  - Tension [Recovered/Resolved]
  - Malaise [Recovered/Resolved]
  - Back pain [Recovered/Resolved]
  - Fatigue [Recovered/Resolved]
  - Application site pain [Recovered/Resolved]
  - Underdose [Unknown]
  - Wrong technique in drug usage process [Unknown]
  - Overdose [Unknown]
  - Product quality issue [Unknown]
